FAERS Safety Report 5453521-7 (Version None)
Quarter: 2007Q3

REPORT INFORMATION
  Report Type: 
  Country: None (occurrence: None)
  Receive Date: 20070913
  Receipt Date: 20070829
  Transmission Date: 20080115
  Serious: Yes (Hospitalization, Other)
  Sender: FDA-Public Use
  Company Number: 2007US-09590

PATIENT
  Age: 41 Year
  Sex: Female

DRUGS (2)
  1. ISOTRETINOIN [Suspect]
     Indication: DRUG USE FOR UNKNOWN INDICATION
     Dosage: 10 MG, ORAL; 40 MG
     Route: 048
  2. BIRTH CONTROL [Concomitant]

REACTIONS (2)
  - CEREBRAL THROMBOSIS [None]
  - MIGRAINE [None]
